FAERS Safety Report 9306274 (Version 1)
Quarter: 2013Q2

REPORT INFORMATION
  Report Type: Report from Study
  Country: US (occurrence: US)
  Receive Date: 20130523
  Receipt Date: 20130523
  Transmission Date: 20140414
  Serious: Yes (Other)
  Sender: FDA-Public Use
  Company Number: US-ABBOTT-13P-163-1091143-00

PATIENT
  Sex: Male

DRUGS (2)
  1. HUMIRA [Suspect]
     Indication: CROHN^S DISEASE
  2. BYSTOLIC [Concomitant]
     Indication: HYPERTENSION
     Dosage: 5 MG DAILY

REACTIONS (2)
  - Gastrointestinal stoma complication [Unknown]
  - Hypertension [Unknown]
